FAERS Safety Report 7419172-X (Version None)
Quarter: 2011Q2

REPORT INFORMATION
  Report Type: 
  Country: None (occurrence: None)
  Receive Date: 20110415
  Receipt Date: 20110404
  Transmission Date: 20111010
  Serious: Yes (Death)
  Sender: FDA-Public Use
  Company Number: US-WATSON-2011-05246

PATIENT
  Age: 38 Year
  Sex: Female

DRUGS (3)
  1. LIDOCAINE [Suspect]
     Indication: NECK PAIN
     Dosage: UNK
  2. HEPARIN SODIUM [Suspect]
     Indication: NECK PAIN
     Dosage: OCCIPITAL INJECTION
  3. CYANOCOBALAMIN [Suspect]
     Indication: NECK PAIN
     Dosage: UNK

REACTIONS (3)
  - CARDIO-RESPIRATORY ARREST [None]
  - ARTERY DISSECTION [None]
  - OFF LABEL USE [None]
